FAERS Safety Report 9398579 (Version 3)
Quarter: 2013Q3

REPORT INFORMATION
  Report Type: Spontaneous
  Country: US (occurrence: US)
  Receive Date: 20130712
  Receipt Date: 20130802
  Transmission Date: 20140515
  Serious: Yes (Death, Life-Threatening, Hospitalization, Other)
  Sender: FDA-Public Use
  Company Number: US-GILEAD-2013-0078814

PATIENT
  Age: 73 Year
  Sex: Female

DRUGS (3)
  1. LETAIRIS [Suspect]
     Indication: PULMONARY HYPERTENSION
     Dosage: 5 MG, UNK
     Route: 048
     Dates: start: 20130611, end: 201307
  2. LETAIRIS [Suspect]
     Indication: HEART DISEASE CONGENITAL
  3. TRACLEER                           /01587701/ [Concomitant]

REACTIONS (7)
  - Respiratory failure [Fatal]
  - Intestinal haemorrhage [Unknown]
  - Acute respiratory distress syndrome [Unknown]
  - Colon cancer [Unknown]
  - Dysuria [Unknown]
  - Urinary tract infection [Unknown]
  - Pneumonia [Unknown]
